FAERS Safety Report 9003451 (Version 1)
Quarter: 2013Q1

REPORT INFORMATION
  Report Type: Spontaneous
  Country: DE (occurrence: DE)
  Receive Date: 20130108
  Receipt Date: 20130108
  Transmission Date: 20140127
  Serious: Yes (Death)
  Sender: FDA-Public Use
  Company Number: DE-OTSUKA-004100

PATIENT
  Sex: Male

DRUGS (1)
  1. PLETAL [Suspect]
     Dosage: 100 MG MILLIGRAM(S), UNKNOWN
     Route: 048
     Dates: start: 20070306

REACTIONS (2)
  - Death [Fatal]
  - Pain in extremity [Unknown]
